FAERS Safety Report 9617703 (Version 1)
Quarter: 2013Q4

REPORT INFORMATION
  Report Type: Spontaneous
  Country: GB (occurrence: None)
  Receive Date: 20131009
  Receipt Date: 20131009
  Transmission Date: 20140711
  Serious: Yes (Death, Hospitalization)
  Sender: FDA-Public Use
  Company Number: FK201304465

PATIENT
  Sex: Female

DRUGS (5)
  1. FUROSEMIDE (MANUFACTURER UNKNOWN) (FUROSEMIDE) (FUROSEMIDE) [Suspect]
     Indication: PRODUCT USED FOR UNKNOWN INDICATION
     Dates: start: 20091021
  2. AUGMENTIN [Suspect]
     Indication: PRODUCT USED FOR UNKNOWN INDICATION
     Dates: start: 20091105, end: 20091112
  3. DIGOXIN (DIGOXIN) [Suspect]
     Indication: PRODUCT USED FOR UNKNOWN INDICATION
     Dates: start: 20051113, end: 20060307
  4. TAMOXIFEN [Suspect]
     Indication: PRODUCT USED FOR UNKNOWN INDICATION
     Dates: start: 200506, end: 20090921
  5. WARFARIN (WARFARIN) [Suspect]
     Indication: PRODUCT USED FOR UNKNOWN INDICATION
     Dates: start: 20051114

REACTIONS (12)
  - Aortic aneurysm [None]
  - Aortic rupture [None]
  - Faeces discoloured [None]
  - Haemorrhage [None]
  - Blister [None]
  - Contusion [None]
  - Malaise [None]
  - Dyspnoea [None]
  - Asthenia [None]
  - Drug interaction [None]
  - Thrombocytopenia [None]
  - Anaemia [None]
